FAERS Safety Report 18425394 (Version 1)
Quarter: 2020Q4

REPORT INFORMATION
  Report Type: Spontaneous
  Country: GB (occurrence: GB)
  Receive Date: 20201026
  Receipt Date: 20201026
  Transmission Date: 20210114
  Serious: Yes (Other)
  Sender: FDA-Public Use
  Company Number: GB-AUROBINDO-AUR-APL-2020-053354

PATIENT
  Age: 50 Year
  Sex: Female

DRUGS (1)
  1. TAMOXIFEN [Suspect]
     Active Substance: TAMOXIFEN
     Indication: BREAST CANCER
     Dosage: 20 MILLIGRAM, ONCE A DAY
     Route: 065

REACTIONS (5)
  - Metrorrhagia [Recovered/Resolved]
  - Suprapubic pain [Recovered/Resolved]
  - Ovarian hyperstimulation syndrome [Recovered/Resolved]
  - Abdominal pain lower [Unknown]
  - Abdominal distension [Unknown]
